FAERS Safety Report 9844843 (Version 3)
Quarter: 2014Q4

REPORT INFORMATION
  Report Type: Spontaneous
  Country: US (occurrence: None)
  Receive Date: 20140122
  Receipt Date: 20141104
  Transmission Date: 20150529
  Serious: Yes (Hospitalization, Other)
  Sender: FDA-Public Use
  Company Number: 2014-US-000365

PATIENT
  Age: 88 Year
  Sex: Female
  Weight: 69.8 kg

DRUGS (32)
  1. PRAMIPEXOLE (PRAMIPEXOLE) [Concomitant]
     Active Substance: PRAMIPEXOLE
  2. ASPIRIN (ACETYSAILCYLIC ACID) [Concomitant]
  3. GUAIFENESIN (GUAIFENESIN) [Concomitant]
  4. EFFEXOR XR (VENLAFAXINE HYDROCHLORIDE) [Concomitant]
  5. ROXANOL (MORPHINE SULFATE) [Concomitant]
  6. XYREM [Suspect]
     Active Substance: SODIUM OXYBATE
     Indication: CATAPLEXY
     Route: 048
     Dates: start: 200412
  7. MECLIZINE HCL (MELOZINE HYDROCHLORIDE) [Concomitant]
  8. DULCOLAX (BISACODYL) [Concomitant]
     Active Substance: BISACODYL
  9. XYREM [Suspect]
     Active Substance: SODIUM OXYBATE
     Indication: NARCOLEPSY
     Route: 048
     Dates: start: 200412
  10. POTASSIUM CHLORIDE (POTASSIUM CHLORIDE) [Concomitant]
     Active Substance: POTASSIUM CHLORIDE
  11. TOPROL (METOPROLOL SUCCINATE) [Concomitant]
  12. TYLENOL [Concomitant]
     Active Substance: ACETAMINOPHEN
  13. RITALIN [Concomitant]
     Active Substance: METHYLPHENIDATE HYDROCHLORIDE
  14. CARDIZEM (DITLIAZEM HYDROCHLORIDE) [Concomitant]
  15. DURAGESIC (FENTANYL) [Concomitant]
  16. LANOXIN [Concomitant]
     Active Substance: DIGOXIN
  17. NORCO (HYDROCODONE BITARTRATE, PARACETAMOL) TABLET [Concomitant]
  18. NITROSTAT (GLYCERYL TRINITRATE) [Concomitant]
  19. MIRALAX (MACROGOL) [Concomitant]
  20. SENOKOT-S (DOCUSATE SODIUM, SENNA ALEXANDRINA) [Concomitant]
  21. GLYBURIDE (GILBENCLAMIDE) [Concomitant]
  22. PROVIGIL [Concomitant]
     Active Substance: MODAFINIL
  23. COMPAZINE (PROCHLORPERAZINE MALEATE) [Concomitant]
  24. ULTRAM (TRAMADOL HYDROCHLORIDE) [Concomitant]
     Active Substance: TRAMADOL HYDROCHLORIDE
  25. TENOMIN (ATENOLOL) TABLET [Concomitant]
  26. ADVAIR DISKUS [Concomitant]
     Active Substance: FLUTICASONE PROPIONATE\SALMETEROL XINAFOATE
  27. LASIX [Concomitant]
     Active Substance: FUROSEMIDE
  28. LISINOPRIL (LISINOPRIL) [Concomitant]
     Active Substance: LISINOPRIL
  29. NEOSPORIN (BACITRACIN, NEOMYCIN SULFATE, POLYYXIN B SULFATE) [Concomitant]
  30. METHYPHENIDATE (METHYLPHENIDATE HYDROCHLORIDE) [Concomitant]
  31. ATIVAN [Concomitant]
     Active Substance: LORAZEPAM
  32. HALDOL (HALOPEIRIDOL) [Concomitant]

REACTIONS (6)
  - Chronic obstructive pulmonary disease [None]
  - Pneumothorax [None]
  - Aspiration pleural cavity [None]
  - Productive cough [None]
  - Cardiac failure congestive [None]
  - Pleural effusion [None]

NARRATIVE: CASE EVENT DATE: 20131201
